FAERS Safety Report 14014608 (Version 7)
Quarter: 2018Q3

REPORT INFORMATION
  Report Type: Report from Study
  Country: CA (occurrence: CA)
  Receive Date: 20170927
  Receipt Date: 20180903
  Transmission Date: 20181010
  Serious: Yes (Other)
  Sender: FDA-Public Use
  Company Number: CA-BRISTOL-MYERS SQUIBB COMPANY-BMS-2017-084485

PATIENT
  Age: 73 Year
  Sex: Female

DRUGS (1)
  1. ABATACEPT [Suspect]
     Active Substance: ABATACEPT
     Indication: RHEUMATOID ARTHRITIS
     Dosage: 125 MG, QWK
     Route: 058
     Dates: start: 20170911, end: 20180823

REACTIONS (8)
  - Limb discomfort [Unknown]
  - Gastrooesophageal reflux disease [Unknown]
  - Adverse event [Unknown]
  - Gastric polyps [Unknown]
  - Dizziness [Unknown]
  - Fatigue [Unknown]
  - Hiatus hernia [Unknown]
  - Gastric neoplasm [Unknown]

NARRATIVE: CASE EVENT DATE: 20171102
